FAERS Safety Report 7423618-0 (Version None)
Quarter: 2011Q2

REPORT INFORMATION
  Report Type: 
  Country: None (occurrence: None)
  Receive Date: 20110413
  Receipt Date: 20110413
  Transmission Date: 20111010
  Serious: Yes (Other)
  Sender: FDA-Public Use
  Company Number: None

PATIENT
  Sex: Female
  Weight: 59.8748 kg

DRUGS (1)
  1. POLYETHYLENE GLYCOL [Suspect]
     Dosage: 17GM QD ORAL X 2-3 DAYS
     Route: 048

REACTIONS (3)
  - BACK PAIN [None]
  - CHEST PAIN [None]
  - JOINT RANGE OF MOTION DECREASED [None]
